FAERS Safety Report 6439065-4 (Version None)
Quarter: 2009Q4

REPORT INFORMATION
  Report Type: 
  Country: None (occurrence: None)
  Receive Date: 20091110
  Receipt Date: 20091030
  Transmission Date: 20100525
  Serious: Yes (Hospitalization)
  Sender: FDA-Public Use
  Company Number: KV200800423

PATIENT
  Age: 77 Year
  Sex: Male
  Weight: 127.9 kg

DRUGS (12)
  1. MORPHINE SULFATE [Suspect]
     Indication: GOUT
     Dosage: 15 MG, QID, ORAL
     Route: 048
     Dates: start: 20080806, end: 20080801
  2. TRICOR [Concomitant]
  3. ROPINIROLE HYDROCHLORIDE [Concomitant]
  4. ALLOPURINOL [Suspect]
  5. SPIRONOLACTONE [Concomitant]
  6. DIGOXIN [Concomitant]
  7. GABAPENTIN [Concomitant]
  8. POTASSIUM CHLORIDE [Concomitant]
  9. LOVASTATIN [Concomitant]
  10. FUROSEMIDE [Concomitant]
  11. METOPROLOL [Concomitant]
  12. ASPIRIN [Concomitant]

REACTIONS (5)
  - ASTHENIA [None]
  - CONFUSIONAL STATE [None]
  - MENTAL IMPAIRMENT [None]
  - PRODUCT QUALITY ISSUE [None]
  - URINARY INCONTINENCE [None]
